FAERS Safety Report 8154034-4 (Version None)
Quarter: 2012Q1

REPORT INFORMATION
  Report Type: 
  Country: None (occurrence: None)
  Receive Date: 20120221
  Receipt Date: 20120221
  Transmission Date: 20120608
  Serious: Yes (Disabling, Other)
  Sender: FDA-Public Use
  Company Number: None

PATIENT
  Age: 39 Year
  Sex: Male
  Weight: 61.234 kg

DRUGS (1)
  1. NEXIUM [Suspect]
     Indication: GASTROOESOPHAGEAL REFLUX DISEASE
     Dosage: ONE A DAY
     Route: 048
     Dates: start: 20070420, end: 20111104

REACTIONS (11)
  - PHOTOPSIA [None]
  - DIARRHOEA [None]
  - PAIN IN EXTREMITY [None]
  - GAIT DISTURBANCE [None]
  - HEADACHE [None]
  - OROPHARYNGEAL PAIN [None]
  - ECONOMIC PROBLEM [None]
  - ANXIETY [None]
  - PLANTAR FASCIITIS [None]
  - PSORIASIS [None]
  - VISUAL IMPAIRMENT [None]
